FAERS Safety Report 8759854 (Version 2)
Quarter: 2012Q4

REPORT INFORMATION
  Report Type: 
  Country: US (occurrence: US)
  Receive Date: 20120829
  Receipt Date: 20120905
  Transmission Date: 20130627
  Serious: Yes (Other)
  Sender: FDA-Public Use
  Company Number: US-ASTRAZENECA-2012SE60279

PATIENT
  Age: 34 Year
  Sex: Female
  Weight: 72.6 kg

DRUGS (3)
  1. SEROQUEL IR [Suspect]
     Indication: BIPOLAR I DISORDER
     Route: 048
     Dates: start: 2012, end: 20120816
  2. SEROQUEL IR [Suspect]
     Indication: BIPOLAR I DISORDER
     Route: 048
     Dates: start: 20120819
  3. SEROQUEL IR [Suspect]
     Indication: BIPOLAR I DISORDER
     Route: 048

REACTIONS (3)
  - Psychotic disorder [Unknown]
  - Drug dose omission [Unknown]
  - Emotional distress [Unknown]
